FAERS Safety Report 16223728 (Version 2)
Quarter: 2019Q2

REPORT INFORMATION
  Report Type: Spontaneous
  Country: GB (occurrence: GB)
  Receive Date: 20190422
  Receipt Date: 20190507
  Transmission Date: 20190711
  Serious: Yes (Disabling)
  Sender: FDA-Public Use
  Company Number: GB-FERRINGPH-2019FE02136

PATIENT

DRUGS (12)
  1. ATORVASTATIN [Concomitant]
     Active Substance: ATORVASTATIN
     Dosage: ()
     Route: 065
  2. PARACETAMOL [Concomitant]
     Active Substance: ACETAMINOPHEN
     Dosage: ()
     Route: 065
  3. ACETYLSALICYLIC ACID [Concomitant]
     Active Substance: ASPIRIN
     Dosage: ()
     Route: 065
  4. LYRICA [Concomitant]
     Active Substance: PREGABALIN
     Dosage: ()
     Route: 065
  5. CLOPIDOGREL [Concomitant]
     Active Substance: CLOPIDOGREL BISULFATE
     Dosage: ()
     Route: 065
  6. AMITRIPTYLINE HYDROCHLORIDE. [Concomitant]
     Active Substance: AMITRIPTYLINE HYDROCHLORIDE
     Dosage: ()
     Route: 065
  7. DEGARELIX [Suspect]
     Active Substance: DEGARELIX
     Indication: PROSTATE CANCER
     Dosage: 80 MG, UNK
     Route: 058
     Dates: start: 20190115, end: 20190115
  8. DEGARELIX [Suspect]
     Active Substance: DEGARELIX
     Dosage: 80 MG, UNK
     Route: 058
     Dates: start: 201702
  9. BISOPROLOL [Concomitant]
     Active Substance: BISOPROLOL
     Dosage: ()
     Route: 065
  10. NEFOPAM [Concomitant]
     Active Substance: NEFOPAM
     Dosage: ()
     Route: 065
  11. GLICLAZIDE [Concomitant]
     Active Substance: GLICLAZIDE
     Dosage: ()
     Route: 065
  12. OMEPRAZOLE. [Concomitant]
     Active Substance: OMEPRAZOLE
     Dosage: ()
     Route: 065

REACTIONS (4)
  - Vomiting [Recovered/Resolved]
  - Confusional state [Recovered/Resolved]
  - Balance disorder [Recovered/Resolved]
  - Nausea [Recovered/Resolved]

NARRATIVE: CASE EVENT DATE: 201810
